FAERS Safety Report 9529828 (Version 2)
Quarter: 2013Q3

REPORT INFORMATION
  Report Type: Report from Study
  Country: AR (occurrence: AR)
  Receive Date: 20130917
  Receipt Date: 20130920
  Transmission Date: 20140515
  Serious: Yes (Hospitalization)
  Sender: FDA-Public Use
  Company Number: PHHY2013AR103028

PATIENT
  Age: 77 Year
  Sex: Male

DRUGS (2)
  1. DIOVAN D [Suspect]
     Indication: HYPERTENSION
     Dosage: 1 TABLET (320/25 MG), DAILY AT EVENING
     Route: 048
  2. RASILEZ [Suspect]
     Dosage: 1 TABLET IN THE MORNING

REACTIONS (3)
  - Arrhythmia [Recovering/Resolving]
  - Hypertension [Recovering/Resolving]
  - Speech disorder [Unknown]
